APPROVED DRUG PRODUCT: TRIAMCINOLONE ACETONIDE
Active Ingredient: TRIAMCINOLONE ACETONIDE
Strength: 0.055MG/SPRAY
Dosage Form/Route: SPRAY, METERED;NASAL
Application: A078104 | Product #002
Applicant: PERRIGO PHARMA INTERNATIONAL DAC
Approved: Nov 14, 2014 | RLD: No | RS: No | Type: OTC